FAERS Safety Report 7628685-7 (Version None)
Quarter: 2011Q3

REPORT INFORMATION
  Report Type: 
  Country: None (occurrence: None)
  Receive Date: 20110722
  Receipt Date: 20110714
  Transmission Date: 20111222
  Serious: Yes (Other)
  Sender: FDA-Public Use
  Company Number: US-BAYER-200938374NA

PATIENT
  Age: 54 Year
  Sex: Male
  Weight: 75.9 kg

DRUGS (22)
  1. FLEXERIL [Concomitant]
     Dosage: 10 MG
     Route: 048
     Dates: start: 20030904
  2. VERSED [Concomitant]
     Dosage: 2GM BOLUS
     Route: 042
     Dates: start: 20031212
  3. ALBUMIN (HUMAN) [Concomitant]
     Dosage: 100ML
     Route: 042
     Dates: start: 20031212, end: 20031212
  4. ANCEF [Concomitant]
     Dosage: 2 GRAMS
     Route: 042
     Dates: start: 20031212, end: 20031212
  5. PERCOCET [Concomitant]
     Dosage: UNK
     Route: 048
     Dates: start: 20030101
  6. ZOCOR [Concomitant]
     Dosage: UNK
     Route: 048
     Dates: start: 20030101
  7. NITROGLYCERIN [Concomitant]
     Dosage: 0.2 MCG/KG/MIN
     Route: 042
     Dates: start: 20031212, end: 20031213
  8. LASIX [Concomitant]
     Dosage: 10 MG
     Route: 042
     Dates: start: 20031212, end: 20031212
  9. TRASYLOL [Suspect]
     Dosage: 50 ML/HR INFUSION
     Route: 042
     Dates: start: 20031212, end: 20031212
  10. INSULIN [Concomitant]
     Dosage: 2.5 UNITS
     Route: 042
     Dates: start: 20031212, end: 20031214
  11. LOPRESSOR [Concomitant]
     Dosage: UNK
     Route: 048
     Dates: start: 19990101
  12. TRASYLOL [Suspect]
     Indication: CORONARY ARTERY BYPASS
     Dosage: 1 ML, ONCE, INITIAL TEST DOSE
     Route: 042
     Dates: start: 20031212, end: 20031212
  13. IBUPROFEN [Concomitant]
     Dosage: 600 MG
     Route: 048
     Dates: start: 20030915
  14. INTEGRILIN [Concomitant]
     Dosage: 13CC/HR
     Route: 042
     Dates: start: 20031211, end: 20031212
  15. CARDIZEM [Concomitant]
     Dosage: 2.5MG/HR
     Route: 042
     Dates: start: 20031212, end: 20031215
  16. VANCOMYCIN HCL [Concomitant]
     Dosage: 1 G
     Route: 042
     Dates: start: 20031212, end: 20031212
  17. GENTAMYCIN SULFATE [Concomitant]
     Dosage: 120 MG
     Route: 042
     Dates: start: 20031212, end: 20031212
  18. ARTHROTEC [Concomitant]
     Dosage: 50 MG
     Route: 048
     Dates: start: 20031021
  19. LOVENOX [Concomitant]
     Route: 058
  20. CALCIUM CHLORIDE [Concomitant]
     Dosage: 100 MG
     Route: 042
     Dates: start: 20031212, end: 20031212
  21. TRASYLOL [Suspect]
     Dosage: 200 ML LOADING DOSE
     Route: 042
     Dates: start: 20031212, end: 20031212
  22. HEPARIN [Concomitant]
     Dosage: 60,000UNITS
     Route: 042
     Dates: start: 20031212, end: 20031212

REACTIONS (10)
  - STRESS [None]
  - PAIN [None]
  - FEAR [None]
  - EMOTIONAL DISTRESS [None]
  - ANXIETY [None]
  - RENAL IMPAIRMENT [None]
  - INJURY [None]
  - UNEVALUABLE EVENT [None]
  - RENAL INJURY [None]
  - RENAL FAILURE [None]
